FAERS Safety Report 23852718 (Version 1)
Quarter: 2024Q2

REPORT INFORMATION
  Report Type: Spontaneous
  Country: DE (occurrence: DE)
  Receive Date: 20240514
  Receipt Date: 20240514
  Transmission Date: 20240716
  Serious: Yes (Other)
  Sender: FDA-Public Use
  Company Number: None

PATIENT
  Sex: Female

DRUGS (7)
  1. DOXYCYCLINE HYCLATE [Suspect]
     Active Substance: DOXYCYCLINE HYCLATE
     Indication: Erythema
     Dosage: 21D - 200MG
     Route: 048
  2. DOXYCYCLINE [Suspect]
     Active Substance: DOXYCYCLINE
     Indication: Erythema
     Dosage: 21D - 200MG
     Route: 048
  3. CLOZAPINE [Suspect]
     Active Substance: CLOZAPINE
     Indication: Schizophrenia
     Dosage: 25 MG
     Route: 048
  4. CLOZAPINE [Suspect]
     Active Substance: CLOZAPINE
     Dosage: 200 UNK
  5. CLOZAPINE [Suspect]
     Active Substance: CLOZAPINE
     Dosage: UNK
  6. ZIPRASIDONE HYDROCHLORIDE MONOHYDRATE [Concomitant]
     Dosage: UNK
  7. ZIPRASIDONE MESYLATE [Concomitant]
     Active Substance: ZIPRASIDONE MESYLATE
     Dosage: 200 MG

REACTIONS (6)
  - Anxiety [Not Recovered/Not Resolved]
  - Depressed mood [Not Recovered/Not Resolved]
  - Arthropod bite [Not Recovered/Not Resolved]
  - Condition aggravated [Unknown]
  - Erythema [Unknown]
  - Off label use [Unknown]
